FAERS Safety Report 4388597-1 (Version None)
Quarter: 2004Q2

REPORT INFORMATION
  Report Type: 
  Country: None (occurrence: None)
  Receive Date: 20040624
  Receipt Date: 20040611
  Transmission Date: 20050107
  Serious: Yes (Other)
  Sender: FDA-Public Use
  Company Number: A0514378A

PATIENT
  Age: 49 Year
  Sex: Female

DRUGS (1)
  1. NICODERM CQ [Suspect]
     Indication: SMOKING CESSATION THERAPY
     Dosage: 21 MG/PER DAY/TRANSDERMAL
     Route: 062
     Dates: start: 20040602

REACTIONS (2)
  - BRONCHOPNEUMONIA [None]
  - PHARMACEUTICAL PRODUCT COMPLAINT [None]
